FAERS Safety Report 13763117 (Version 1)
Quarter: 2017Q3

REPORT INFORMATION
  Report Type: Report from Study
  Country: US (occurrence: US)
  Receive Date: 20170718
  Receipt Date: 20170718
  Transmission Date: 20171127
  Serious: No
  Sender: FDA-Public Use
  Company Number: PHEH2017US022004

PATIENT
  Age: 43 Year
  Sex: Female
  Weight: 87.54 kg

DRUGS (1)
  1. EXTAVIA [Suspect]
     Active Substance: INTERFERON BETA-1B
     Indication: MULTIPLE SCLEROSIS
     Dosage: 0.0625 MG (0.25 ML) FOR WEEK 1-2
     Route: 058
     Dates: start: 20170711

REACTIONS (1)
  - Injection site paraesthesia [Unknown]

NARRATIVE: CASE EVENT DATE: 20170711
